FAERS Safety Report 14308647 (Version 1)
Quarter: 2017Q4

REPORT INFORMATION
  Report Type: Spontaneous
  Country: IT (occurrence: IT)
  Receive Date: 20171220
  Receipt Date: 20171220
  Transmission Date: 20180321
  Serious: Yes (Other)
  Sender: FDA-Public Use
  Company Number: IT-BAYER-2017-242184

PATIENT
  Sex: Female

DRUGS (1)
  1. ULTRAVIST [Suspect]
     Active Substance: IOPROMIDE
     Indication: HYPERSENSITIVITY
     Dosage: 78 ML, UNK
     Route: 040
     Dates: start: 20171130, end: 20171130

REACTIONS (3)
  - Laryngeal oedema [Recovering/Resolving]
  - Suffocation feeling [Recovering/Resolving]
  - Feeling cold [Recovering/Resolving]

NARRATIVE: CASE EVENT DATE: 20171130
